FAERS Safety Report 13270994 (Version 1)
Quarter: 2017Q1

REPORT INFORMATION
  Report Type: Spontaneous
  Country: US (occurrence: US)
  Receive Date: 20170225
  Receipt Date: 20170225
  Transmission Date: 20170428
  Serious: No
  Sender: FDA-Public Use
  Company Number: US-SHIRE-US201703227

PATIENT
  Age: 49 Year
  Sex: Male
  Weight: 83.9 kg

DRUGS (1)
  1. XIIDRA [Suspect]
     Active Substance: LIFITEGRAST
     Indication: DRY EYE
     Dosage: 1 GTT (BOTH EYES), 2X/DAY:BID
     Route: 047
     Dates: start: 2016

REACTIONS (1)
  - Instillation site erythema [Not Recovered/Not Resolved]

NARRATIVE: CASE EVENT DATE: 20161209
